FAERS Safety Report 8027930-6 (Version None)
Quarter: 2012Q1

REPORT INFORMATION
  Report Type: 
  Country: None (occurrence: None)
  Receive Date: 20120106
  Receipt Date: 20111230
  Transmission Date: 20120608
  Serious: Yes (Death, Congenital Anomaly)
  Sender: FDA-Public Use
  Company Number: FR-GILEAD-2012-0048703

PATIENT
  Sex: Female

DRUGS (3)
  1. TRUVADA [Suspect]
     Indication: HIV INFECTION
     Route: 064
  2. NORVIR [Suspect]
     Indication: HIV TEST POSITIVE
     Route: 064
  3. REYATAZ [Suspect]
     Indication: HIV TEST POSITIVE
     Route: 064

REACTIONS (1)
  - CONGENITAL ANOMALY [None]
